FAERS Safety Report 5902086-1 (Version None)
Quarter: 2008Q3

REPORT INFORMATION
  Report Type: 
  Country: None (occurrence: None)
  Receive Date: 20080919
  Receipt Date: 20080806
  Transmission Date: 20090109
  Serious: No
  Sender: FDA-Public Use
  Company Number: US-WYE-H05424608

PATIENT
  Age: 61 Year
  Sex: Female
  Weight: 104.42 kg

DRUGS (8)
  1. PRISTIQ [Suspect]
     Indication: DEPRESSION
     Dosage: 50 MG 1X PER 1 DAY ORAL
     Route: 048
     Dates: start: 20080101
  2. HYDROCHLOROTHIAZIDE [Concomitant]
  3. ASPIRIN [Concomitant]
  4. LISINOPRIL [Concomitant]
  5. SYNTHROID [Concomitant]
  6. PAPAVERINE (PAPAVERINE) [Concomitant]
  7. ZOCOR [Concomitant]
  8. ALLEGRA [Concomitant]

REACTIONS (1)
  - NAUSEA [None]
